FAERS Safety Report 10508548 (Version 1)
Quarter: 2014Q4

REPORT INFORMATION
  Report Type: Spontaneous
  Country: US (occurrence: None)
  Receive Date: 20141008
  Receipt Date: 20141008
  Transmission Date: 20150528
  Serious: No
  Sender: FDA-Public Use
  Company Number: None

PATIENT
  Age: 49 Year
  Sex: Female
  Weight: 92.6 kg

DRUGS (1)
  1. NITROFURANTOIN. [Suspect]
     Active Substance: NITROFURANTOIN
     Route: 048
     Dates: start: 20131011, end: 20131024

REACTIONS (3)
  - Lip swelling [None]
  - Headache [None]
  - Urticaria [None]

NARRATIVE: CASE EVENT DATE: 20131025
